FAERS Safety Report 13620840 (Version 5)
Quarter: 2017Q4

REPORT INFORMATION
  Report Type: Spontaneous
  Country: US (occurrence: US)
  Receive Date: 20170607
  Receipt Date: 20171206
  Transmission Date: 20180320
  Serious: Yes (Hospitalization, Other)
  Sender: FDA-Public Use
  Company Number: US-BAUSCH-BL-2017-018100

PATIENT
  Age: 72 Year
  Sex: Male
  Weight: 68.1 kg

DRUGS (1)
  1. XIFAXAN [Suspect]
     Active Substance: RIFAXIMIN
     Indication: HEPATIC CIRRHOSIS
     Route: 048
     Dates: start: 20150723

REACTIONS (4)
  - Gastrointestinal haemorrhage [Recovered/Resolved]
  - Confusional state [Unknown]
  - Ammonia increased [Unknown]
  - Disorientation [Unknown]

NARRATIVE: CASE EVENT DATE: 20170530
